FAERS Safety Report 8102747-2 (Version None)
Quarter: 2012Q1

REPORT INFORMATION
  Report Type: 
  Country: None (occurrence: None)
  Receive Date: 20120126
  Receipt Date: 20120119
  Transmission Date: 20120608
  Serious: Yes (Other)
  Sender: FDA-Public Use
  Company Number: 2012SP002246

PATIENT
  Age: 24 Year
  Sex: Female
  Weight: 113 kg

DRUGS (1)
  1. NEXPLANON [Suspect]
     Indication: PRODUCT USED FOR UNKNOWN INDICATION
     Dosage: 68 MG; SBDE
     Route: 059
     Dates: start: 20110705, end: 20120110

REACTIONS (4)
  - ABORTION SPONTANEOUS [None]
  - DEVICE BREAKAGE [None]
  - PREGNANCY WITH IMPLANT CONTRACEPTIVE [None]
  - MATERNAL EXPOSURE DURING PREGNANCY [None]
